FAERS Safety Report 4699573-3 (Version None)
Quarter: 2005Q2

REPORT INFORMATION
  Report Type: 
  Country: None (occurrence: None)
  Receive Date: 20050624
  Receipt Date: 20050620
  Transmission Date: 20051028
  Serious: Yes (Hospitalization)
  Sender: FDA-Public Use
  Company Number: 2005PK01073

PATIENT
  Age: 26975 Day
  Sex: Female
  Weight: 102 kg

DRUGS (1)
  1. NOLVADEX [Suspect]
     Indication: BREAST CANCER
     Route: 048
     Dates: start: 20030603, end: 20050615

REACTIONS (2)
  - HYDROMETRA [None]
  - UTERINE POLYP [None]
